FAERS Safety Report 22393950 (Version 2)
Quarter: 2023Q2

REPORT INFORMATION
  Report Type: Spontaneous
  Country: IN (occurrence: IN)
  Receive Date: 20230601
  Receipt Date: 20230606
  Transmission Date: 20230721
  Serious: Yes (Other)
  Sender: FDA-Public Use
  Company Number: IN-MLMSERVICE-20230522-4292643-1

PATIENT
  Age: 18 Month
  Sex: Female

DRUGS (3)
  1. CARBOPLATIN [Suspect]
     Active Substance: CARBOPLATIN
     Indication: Atypical teratoid/rhabdoid tumour of CNS
     Dosage: 500 MG/M2 IV D3 EVERY 3 WEEKS
     Route: 042
  2. ETOPOSIDE [Suspect]
     Active Substance: ETOPOSIDE
     Indication: Atypical teratoid/rhabdoid tumour of CNS
     Dosage: 100 MG/M2 (D1-D3) EVERY 3 WEEKS
     Route: 042
  3. IFOSFAMIDE [Suspect]
     Active Substance: IFOSFAMIDE
     Indication: Atypical teratoid/rhabdoid tumour of CNS
     Dosage: 2 G/M2 D1 - D3 EVERY 3 WEEKS
     Route: 042

REACTIONS (4)
  - Neutropenia [Unknown]
  - Leukopenia [Unknown]
  - Off label use [Unknown]
  - Off label use [Unknown]
